FAERS Safety Report 7078081-9 (Version None)
Quarter: 2010Q4

REPORT INFORMATION
  Report Type: 
  Country: None (occurrence: None)
  Receive Date: 20101102
  Receipt Date: 20101022
  Transmission Date: 20110411
  Serious: No
  Sender: FDA-Public Use
  Company Number: US-BIOGENIDEC-2010BI037347

PATIENT
  Age: 30 Year
  Sex: Female

DRUGS (1)
  1. TYSABRI [Suspect]
     Indication: MULTIPLE SCLEROSIS
     Route: 042
     Dates: start: 20090319

REACTIONS (5)
  - CHEST PAIN [None]
  - EYELID DISORDER [None]
  - NASOPHARYNGITIS [None]
  - OVARIAN CYST [None]
  - VISUAL IMPAIRMENT [None]
